FAERS Safety Report 23747886 (Version 2)
Quarter: 2024Q2

REPORT INFORMATION
  Report Type: Report from Study
  Country: US (occurrence: US)
  Receive Date: 20240416
  Receipt Date: 20240503
  Transmission Date: 20240716
  Serious: Yes (Death, Hospitalization)
  Sender: FDA-Public Use
  Company Number: US-BAYER-2024A038977

PATIENT
  Age: 76 Year
  Sex: Female
  Weight: 41.723 kg

DRUGS (17)
  1. ADEMPAS [Suspect]
     Active Substance: RIOCIGUAT
     Indication: Pulmonary arterial hypertension
     Dosage: UNK
     Dates: start: 20220425
  2. ADEMPAS [Suspect]
     Active Substance: RIOCIGUAT
     Indication: Pulmonary arterial hypertension
     Dosage: 2.5 MG, TID
     Route: 048
  3. ADEMPAS [Suspect]
     Active Substance: RIOCIGUAT
     Indication: Pulmonary arterial hypertension
     Dosage: UNK
  4. CRESTOR [Concomitant]
     Active Substance: ROSUVASTATIN CALCIUM
  5. FUROSEMIDE [Concomitant]
     Active Substance: FUROSEMIDE
  6. AMLODIPINE BESYLATE [Concomitant]
     Active Substance: AMLODIPINE BESYLATE
  7. VITAMIN D3 [Concomitant]
     Active Substance: CHOLECALCIFEROL
  8. MIRTAZAPINE [Concomitant]
     Active Substance: MIRTAZAPINE
  9. POTASSIUM CHLORIDE [Concomitant]
     Active Substance: POTASSIUM CHLORIDE
  10. ORENITRAM [Concomitant]
     Active Substance: TREPROSTINIL
  11. OPSUMIT [Concomitant]
     Active Substance: MACITENTAN
  12. LORAZEPAM [Concomitant]
     Active Substance: LORAZEPAM
  13. PANTOPRAZOLE SODIUM [Concomitant]
     Active Substance: PANTOPRAZOLE SODIUM
  14. LOSARTAN POTASSIUM [Concomitant]
     Active Substance: LOSARTAN POTASSIUM
  15. XARELTO [Concomitant]
     Active Substance: RIVAROXABAN
  16. CALCIUM [Concomitant]
     Active Substance: CALCIUM
  17. METHIMAZOLE [Concomitant]
     Active Substance: METHIMAZOLE

REACTIONS (4)
  - Right ventricular failure [Fatal]
  - Pulmonary arterial hypertension [Fatal]
  - Dementia [Not Recovered/Not Resolved]
  - Depression [None]

NARRATIVE: CASE EVENT DATE: 20230101
